FAERS Safety Report 4349209-6 (Version None)
Quarter: 2004Q2

REPORT INFORMATION
  Report Type: 
  Country: None (occurrence: None)
  Receive Date: 20040428
  Receipt Date: 20040412
  Transmission Date: 20050107
  Serious: Yes (Life-Threatening)
  Sender: FDA-Public Use
  Company Number: JP-ROCHE-364066

PATIENT
  Age: 55 Year
  Sex: Female

DRUGS (2)
  1. NICARDIPINE HCL [Suspect]
     Indication: DRUG USE FOR UNKNOWN INDICATION
     Route: 041
     Dates: start: 20040401, end: 20040406
  2. GLYCEROL 2.6% [Concomitant]
     Route: 041
     Dates: start: 20040401

REACTIONS (2)
  - PLEURAL EFFUSION [None]
  - PULMONARY OEDEMA [None]
